FAERS Safety Report 7481291-X (Version None)
Quarter: 2011Q2

REPORT INFORMATION
  Report Type: 
  Country: None (occurrence: None)
  Receive Date: 20110506
  Receipt Date: 20110427
  Transmission Date: 20111010
  Serious: Yes (Hospitalization)
  Sender: FDA-Public Use
  Company Number: UTC-005739

PATIENT
  Age: 60 Year
  Sex: Female
  Weight: 55.3 kg

DRUGS (2)
  1. REMODULIN [Suspect]
     Indication: PULMONARY ARTERIAL HYPERTENSION
     Dosage: 33.12 UG/KG (0.023 UG/KG, 1 IN 1 MIN), INTRAVENOUS
     Route: 042
  2. REVATIO [Concomitant]

REACTIONS (3)
  - CATHETER SITE SWELLING [None]
  - DEVICE RELATED INFECTION [None]
  - CATHETER SITE ERYTHEMA [None]
